FAERS Safety Report 9342143 (Version 2)
Quarter: 2013Q2

REPORT INFORMATION
  Report Type: Spontaneous
  Country: DK (occurrence: FR)
  Receive Date: 20130611
  Receipt Date: 20130619
  Transmission Date: 20140414
  Serious: Yes (Death)
  Sender: FDA-Public Use
  Company Number: FR-FRI-1000045789

PATIENT
  Age: 66 Year
  Sex: Female

DRUGS (17)
  1. CITALOPRAM [Suspect]
     Dates: start: 20130416, end: 20130507
  2. FORTUM [Suspect]
     Route: 042
     Dates: start: 20130501, end: 20130507
  3. CIFLOX [Suspect]
     Route: 042
     Dates: start: 20130501, end: 20130507
  4. LASILIX [Suspect]
     Route: 042
     Dates: start: 20130305
  5. LASILIX [Suspect]
     Route: 042
     Dates: start: 20130415, end: 20130417
  6. LASILIX [Suspect]
     Route: 042
     Dates: start: 20130502, end: 20130507
  7. FLUCONAZOLE AGUETTANT [Suspect]
     Route: 042
     Dates: start: 20130420, end: 20130507
  8. INEXIUM [Suspect]
     Route: 042
     Dates: start: 20130415, end: 20130507
  9. TAZOCILLINE [Concomitant]
     Dates: start: 20130330
  10. TAZOCILLINE [Concomitant]
     Dates: start: 20130415, end: 20130418
  11. TAZOCILLINE [Concomitant]
     Dates: start: 20130509
  12. VANCOMYCINE [Concomitant]
     Dates: start: 20130330
  13. ORBENINE [Concomitant]
     Dates: start: 20130330
  14. GENTALLINE [Concomitant]
     Dates: start: 20130330
  15. PIPERACILLINE [Concomitant]
     Dates: start: 20130418, end: 20130430
  16. HEPARIN [Concomitant]
     Dates: start: 20130418, end: 20130430
  17. AMIKLIN [Concomitant]
     Dates: start: 20130418, end: 20130430

REACTIONS (1)
  - Erythema multiforme [Fatal]
